FAERS Safety Report 9608515 (Version 1)
Quarter: 2013Q4

REPORT INFORMATION
  Report Type: Spontaneous
  Country: US (occurrence: None)
  Receive Date: 20131007
  Receipt Date: 20131007
  Transmission Date: 20140711
  Serious: Yes (Hospitalization)
  Sender: FDA-Public Use
  Company Number: None

PATIENT
  Age: 59 Year
  Sex: Male

DRUGS (2)
  1. OXALIPLATIN (ELOXATIN) [Suspect]
     Indication: OESOPHAGEAL CARCINOMA
     Route: 042
     Dates: start: 20130827
  2. LEUCOVORIN [Suspect]
     Indication: OESOPHAGEAL CARCINOMA
     Route: 042
     Dates: start: 20130827

REACTIONS (12)
  - VIIth nerve paralysis [None]
  - Dysarthria [None]
  - Muscular weakness [None]
  - Vision blurred [None]
  - Dysarthria [None]
  - Dizziness [None]
  - Hypoaesthesia oral [None]
  - Headache [None]
  - Nausea [None]
  - Speech disorder [None]
  - VIIth nerve paralysis [None]
  - Transient ischaemic attack [None]
